FAERS Safety Report 8762577 (Version 1)
Quarter: 2012Q4

REPORT INFORMATION
  Report Type: 
  Country: FR (occurrence: FR)
  Receive Date: 20120830
  Receipt Date: 20120830
  Transmission Date: 20130627
  Serious: Yes (Hospitalization)
  Sender: FDA-Public Use
  Company Number: FR-BAYER-2012-087767

PATIENT
  Age: 47 Year
  Sex: Female

DRUGS (7)
  1. NEXAVAR [Suspect]
     Indication: HEPATIC NEOPLASM MALIGNANT
     Dosage: 2 DF, BID
     Dates: start: 20120622, end: 20120701
  2. LOXEN [Concomitant]
     Dosage: 50 mg, UNK
  3. SEROPLEX [Concomitant]
     Dosage: 5 mg, UNK
  4. RANITIDINE [Concomitant]
  5. CARDENSIEL [Concomitant]
     Dosage: 1.25 mg, UNK
  6. RAMIPRIL [Concomitant]
  7. RAMIPRIL [Concomitant]
     Dosage: UNK
     Route: 048
     Dates: start: 20120703

REACTIONS (2)
  - Acute pulmonary oedema [Recovered/Resolved]
  - Hypertension [Recovered/Resolved]
